FAERS Safety Report 8539108-8 (Version None)
Quarter: 2012Q3

REPORT INFORMATION
  Report Type: 
  Country: None (occurrence: None)
  Receive Date: 20120726
  Receipt Date: 20120725
  Transmission Date: 20120928
  Serious: Yes (Hospitalization)
  Sender: FDA-Public Use
  Company Number: PHHY2012AU063826

PATIENT
  Sex: Male

DRUGS (1)
  1. CLOZARIL [Suspect]
     Dosage: 25 MG
     Dates: start: 20030627

REACTIONS (3)
  - THINKING ABNORMAL [None]
  - ABNORMAL BEHAVIOUR [None]
  - ANXIETY [None]
